FAERS Safety Report 17010929 (Version 2)
Quarter: 2019Q4

REPORT INFORMATION
  Report Type: Spontaneous
  Country: AU (occurrence: AU)
  Receive Date: 20191108
  Receipt Date: 20191125
  Transmission Date: 20200122
  Serious: Yes (Other)
  Sender: FDA-Public Use
  Company Number: AU-TAKEDA-2019TUS063056

PATIENT
  Sex: Male

DRUGS (2)
  1. ADENURIC [Suspect]
     Active Substance: FEBUXOSTAT
     Indication: HYPERURICAEMIA
     Dosage: 80 MILLIGRAM, QD
     Route: 065
     Dates: start: 2019
  2. ADENURIC [Suspect]
     Active Substance: FEBUXOSTAT
     Dosage: 40 MILLIGRAM, 3/WEEK
     Route: 065

REACTIONS (6)
  - Dyspepsia [Recovered/Resolved]
  - Arrhythmia [Unknown]
  - Nausea [Recovered/Resolved]
  - Bradycardia [Recovering/Resolving]
  - Tachycardia [Recovering/Resolving]
  - Cardiac pacemaker insertion [Recovered/Resolved]
